FAERS Safety Report 8306658-9 (Version None)
Quarter: 2012Q2

REPORT INFORMATION
  Report Type: 
  Country: None (occurrence: None)
  Receive Date: 20120420
  Receipt Date: 20120403
  Transmission Date: 20120825
  Serious: Yes (Life-Threatening)
  Sender: FDA-Public Use
  Company Number: 2012P1012069

PATIENT
  Age: 42 Year
  Sex: Male

DRUGS (2)
  1. MINITRAN [Suspect]
     Indication: MYOCARDIAL INFARCTION
     Dosage: X1;SL
     Route: 060
  2. MINITRAN [Suspect]
     Indication: BLOOD PRESSURE INCREASED
     Dosage: X1;SL
     Route: 060

REACTIONS (4)
  - CORONARY ARTERY OCCLUSION [None]
  - GENERAL PHYSICAL HEALTH DETERIORATION [None]
  - VENTRICULAR FIBRILLATION [None]
  - CARDIAC ARREST [None]
